FAERS Safety Report 22315992 (Version 7)
Quarter: 2023Q4

REPORT INFORMATION
  Report Type: Report from Study
  Country: US (occurrence: US)
  Receive Date: 20230512
  Receipt Date: 20231026
  Transmission Date: 20240110
  Serious: Yes (Death, Life-Threatening, Hospitalization)
  Sender: FDA-Public Use
  Company Number: US-GILEAD-2023-0621154

PATIENT
  Age: 77 Year
  Sex: Male
  Weight: 86 kg

DRUGS (65)
  1. BREXUCABTAGENE AUTOLEUCEL [Suspect]
     Active Substance: BREXUCABTAGENE AUTOLEUCEL
     Indication: Mantle cell lymphoma
     Dosage: 68 ONCE
     Route: 042
     Dates: start: 20221228, end: 20221228
  2. FLUDARABINE [Suspect]
     Active Substance: FLUDARABINE PHOSPHATE
     Indication: Bone marrow conditioning regimen
     Dosage: 60 QD
     Route: 042
     Dates: start: 20221222, end: 20221224
  3. CYCLOPHOSPHAMIDE [Suspect]
     Active Substance: CYCLOPHOSPHAMIDE
     Indication: Bone marrow conditioning regimen
     Dosage: 1000 QD
     Route: 042
     Dates: start: 20221222, end: 20221224
  4. CYTARABINE [Suspect]
     Active Substance: CYTARABINE
     Indication: Bone marrow conditioning regimen
     Dosage: 3880
     Route: 065
     Dates: start: 20221208, end: 20221208
  5. CYTARABINE [Suspect]
     Active Substance: CYTARABINE
     Dosage: 3888
     Route: 065
     Dates: start: 20221209, end: 20221209
  6. DEXAMETHASONE [Suspect]
     Active Substance: DEXAMETHASONE
     Indication: Product used for unknown indication
     Dosage: 12
     Route: 065
     Dates: start: 20221208, end: 20221208
  7. DEXAMETHASONE [Suspect]
     Active Substance: DEXAMETHASONE
     Dosage: 12
     Route: 065
     Dates: start: 20221209, end: 20221209
  8. DEXAMETHASONE [Suspect]
     Active Substance: DEXAMETHASONE
     Dosage: 10,MG,OTHER
     Route: 042
     Dates: start: 20230226, end: 20230306
  9. ASPIRIN [Concomitant]
     Active Substance: ASPIRIN
     Dosage: 81,MG,DAILY
     Route: 048
     Dates: start: 202006
  10. ALLOPURINOL [Concomitant]
     Active Substance: ALLOPURINOL
     Dosage: 300,MG,DAILY
     Route: 048
     Dates: start: 20221129
  11. FLUCONAZOLE [Concomitant]
     Active Substance: FLUCONAZOLE
     Dosage: 400,MG,DAILY
     Route: 048
     Dates: start: 20221225
  12. FLUCONAZOLE [Concomitant]
     Active Substance: FLUCONAZOLE
     Dosage: 400,MG,DAILY
     Route: 048
     Dates: start: 20221226, end: 20230303
  13. FLUCONAZOLE [Concomitant]
     Active Substance: FLUCONAZOLE
     Dosage: 400,MG,DAILY
     Route: 042
     Dates: start: 20230220, end: 20230226
  14. FLUCONAZOLE [Concomitant]
     Active Substance: FLUCONAZOLE
     Dosage: 400,MG,DAILY
     Route: 048
     Dates: start: 20230227, end: 20230303
  15. MELATONIN [Concomitant]
     Active Substance: MELATONIN
     Dosage: 3,MG,OTHER
     Route: 048
     Dates: start: 20221227
  16. MELATONIN [Concomitant]
     Active Substance: MELATONIN
     Dosage: 3,MG,OTHER
     Route: 048
     Dates: start: 20221226, end: 20230305
  17. MELATONIN [Concomitant]
     Active Substance: MELATONIN
     Dosage: 3,MG,OTHER
     Route: 048
     Dates: start: 20221226, end: 20230304
  18. EZETIMIBE [Concomitant]
     Active Substance: EZETIMIBE
     Dosage: 10,MG,DAILY
     Route: 048
     Dates: start: 20221228
  19. EZETIMIBE [Concomitant]
     Active Substance: EZETIMIBE
     Dosage: 10,MG,DAILY
     Route: 048
     Dates: start: 20211111
  20. EZETIMIBE [Concomitant]
     Active Substance: EZETIMIBE
     Dosage: 10,MG,DAILY
     Route: 048
     Dates: start: 20211111, end: 20230227
  21. CALCIUM CARBONATE [Concomitant]
     Active Substance: CALCIUM CARBONATE
     Dosage: 500,MG,DAILY
     Route: 048
     Dates: start: 20230118
  22. PROCHLORPERAZINE [Concomitant]
     Active Substance: PROCHLORPERAZINE
     Dosage: 5,MG,FOUR TIMES DAILY
     Route: 048
     Dates: start: 20230125
  23. ACETAMINOPHEN [Concomitant]
     Active Substance: ACETAMINOPHEN
     Dosage: 650,MG,FOUR TIMES DAILY
     Route: 048
     Dates: start: 20230125
  24. ACYCLOVIR [Concomitant]
     Active Substance: ACYCLOVIR
     Dosage: 400,MG,TWICE DAILY
     Route: 048
     Dates: start: 20230125
  25. ALBUTEROL [Concomitant]
     Active Substance: ALBUTEROL
     Dosage: 2,OTHER,THREE TIMES DAILY
     Route: 055
     Dates: start: 20230125
  26. ALBUTEROL [Concomitant]
     Active Substance: ALBUTEROL
     Dosage: UNK
     Dates: start: 20230207, end: 20230306
  27. CEFDINIR [Concomitant]
     Active Substance: CEFDINIR
     Dosage: 300,MG,TWICE DAILY
     Route: 048
     Dates: start: 20230126
  28. CEFDINIR [Concomitant]
     Active Substance: CEFDINIR
     Dosage: 300,MG,TWICE DAILY
     Route: 048
     Dates: start: 20230126, end: 20230226
  29. LEVETIRACETAM [Concomitant]
     Active Substance: LEVETIRACETAM
     Dosage: 500,MG,TWICE DAILY
     Route: 048
     Dates: start: 20230126
  30. LEVETIRACETAM [Concomitant]
     Active Substance: LEVETIRACETAM
     Dosage: 500,MG,TWICE DAILY
     Route: 048
     Dates: start: 20230126, end: 20230306
  31. LEVETIRACETAM [Concomitant]
     Active Substance: LEVETIRACETAM
     Dosage: 500,MG,OTHER
     Route: 042
     Dates: start: 20230306, end: 20230306
  32. ASCORBIC ACID [Concomitant]
     Active Substance: ASCORBIC ACID
     Dosage: 500,MG,DAILY
     Route: 048
     Dates: start: 20230126
  33. ASCORBIC ACID [Concomitant]
     Active Substance: ASCORBIC ACID
     Dosage: 500,MG,DAILY
     Route: 048
     Dates: start: 20221227, end: 20230222
  34. GANCICLOVIR [Concomitant]
     Active Substance: GANCICLOVIR
     Dosage: 700,MG,DAILY
     Route: 042
     Dates: start: 20230131, end: 20230228
  35. PANTOPRAZOLE [Concomitant]
     Active Substance: PANTOPRAZOLE
     Dosage: 40,MG,TWICE DAILY
     Route: 048
     Dates: start: 20170605, end: 20230306
  36. SIMVASTATIN [Concomitant]
     Active Substance: SIMVASTATIN
     Dosage: 40,MG,DAILY
     Route: 048
     Dates: start: 20171118, end: 20230210
  37. SIMVASTATIN [Concomitant]
     Active Substance: SIMVASTATIN
     Dosage: 40,MG,DAILY
     Route: 048
     Dates: start: 20171118, end: 20230207
  38. LORAZEPAM [Concomitant]
     Active Substance: LORAZEPAM
     Dosage: 0.5-1,MG,OTHER
     Route: 048
     Dates: start: 2020, end: 20230305
  39. LORAZEPAM [Concomitant]
     Active Substance: LORAZEPAM
     Dosage: 0.25,MG,ONCE
     Route: 042
     Dates: start: 20230210, end: 20230210
  40. VITAMIN C [Concomitant]
     Active Substance: ASCORBIC ACID
     Dosage: 500,MG,DAILY
     Route: 048
     Dates: start: 20200213, end: 20230227
  41. VITAMIN D2 [Concomitant]
     Active Substance: ERGOCALCIFEROL
     Dosage: 10,OTHER,DAILY
     Route: 048
     Dates: start: 20200709, end: 20230306
  42. MORPHINE [Concomitant]
     Active Substance: MORPHINE
     Dosage: 15,MG,OTHER
     Route: 048
     Dates: start: 20230207, end: 20230306
  43. MORPHINE [Concomitant]
     Active Substance: MORPHINE
     Dosage: 0.5,OTHER,ONCE
     Route: 042
     Dates: start: 20230307, end: 20230307
  44. VITAMINS NOS [Concomitant]
     Active Substance: VITAMINS
     Dosage: 400,OTHER,DAILY
     Route: 048
     Dates: start: 20230209, end: 20230306
  45. VITAMINS NOS [Concomitant]
     Active Substance: VITAMINS
     Dosage: 0.5,OTHER,ONCE
     Route: 042
     Dates: start: 20230307, end: 20230307
  46. ARTIFICIAL SALIVA [Concomitant]
     Dosage: UNKNOWN,OTHER,OTHER
     Route: 048
     Dates: start: 20230212, end: 20230307
  47. PIPERACILLIN AND TAZOBACTAM [Concomitant]
     Active Substance: PIPERACILLIN SODIUM\TAZOBACTAM SODIUM
     Dosage: 3.375,G,OTHER
     Route: 042
     Dates: start: 20230212, end: 20230216
  48. PIPERACILLIN AND TAZOBACTAM [Concomitant]
     Active Substance: PIPERACILLIN SODIUM\TAZOBACTAM SODIUM
     Dosage: 3.375,G,OTHER
     Route: 042
     Dates: start: 20230222, end: 20230306
  49. FILGRASTIM [Concomitant]
     Active Substance: FILGRASTIM
     Dosage: 300,OTHER,OTHER
     Route: 058
     Dates: start: 20230213, end: 20230305
  50. GLUCAGON [Concomitant]
     Active Substance: GLUCAGON\GLUCAGON HYDROCHLORIDE\WATER
     Dosage: 1,MG,OTHER
     Route: 030
     Dates: start: 20230215, end: 20230305
  51. GLUCAGON [Concomitant]
     Active Substance: GLUCAGON\GLUCAGON HYDROCHLORIDE\WATER
     Dosage: 1,MG,ONCE
     Route: 030
     Dates: start: 20230215, end: 20230215
  52. THIAMINE [Concomitant]
     Active Substance: THIAMINE
     Dosage: 100,MG,DAILY
     Route: 048
     Dates: start: 20230216, end: 20230306
  53. THIAMINE [Concomitant]
     Active Substance: THIAMINE
     Dosage: 100,MG,DAILY
     Route: 048
     Dates: start: 20230228, end: 20230306
  54. PENTAMIDINE [Concomitant]
     Active Substance: PENTAMIDINE
     Dosage: 300,MG,ONCE
     Route: 055
     Dates: start: 20230207, end: 20230207
  55. PENTAMIDINE [Concomitant]
     Active Substance: PENTAMIDINE
     Dosage: 300,MG,ONCE
     Route: 055
     Dates: start: 20230303, end: 20230303
  56. MAGNESIUM SULFATE [Concomitant]
     Active Substance: MAGNESIUM SULFATE\MAGNESIUM SULFATE HEPTAHYDRATE
     Dosage: 4,G,ONCE
     Route: 042
     Dates: start: 20230212, end: 20230212
  57. MAGNESIUM SULFATE [Concomitant]
     Active Substance: MAGNESIUM SULFATE\MAGNESIUM SULFATE HEPTAHYDRATE
     Dosage: 4,G,ONCE
     Route: 042
     Dates: start: 20230214, end: 20230214
  58. FUROSEMIDE [Concomitant]
     Active Substance: FUROSEMIDE
     Dosage: 20,MG,ONCE
     Route: 042
     Dates: start: 20230214, end: 20230214
  59. FUROSEMIDE [Concomitant]
     Active Substance: FUROSEMIDE
     Dosage: 40,MG,ONCE
     Route: 042
     Dates: start: 20230220, end: 20230220
  60. HYDROCORTISONE [Concomitant]
     Active Substance: HYDROCORTISONE
     Dosage: 100,MG,ONCE
     Route: 050
     Dates: start: 20230214, end: 20230214
  61. INSULIN BEEF [Concomitant]
     Active Substance: INSULIN BEEF
     Dosage: 10,OTHER,ONCE
     Route: 058
     Dates: start: 20230215, end: 20230215
  62. INSULIN BEEF [Concomitant]
     Active Substance: INSULIN BEEF
     Dosage: 5,OTHER,ONCE
     Route: 058
     Dates: start: 20230217, end: 20230217
  63. INSULIN BEEF [Concomitant]
     Active Substance: INSULIN BEEF
     Dosage: 4,OTHER,ONCE
     Route: 058
     Dates: start: 20230228, end: 20230228
  64. INSULIN BEEF [Concomitant]
     Active Substance: INSULIN BEEF
     Dosage: 4,OTHER,ONCE
     Route: 058
     Dates: start: 20230217, end: 20230217
  65. METHOTREXATE SODIUM [Concomitant]
     Active Substance: METHOTREXATE SODIUM
     Dosage: 15,MG,ONCE
     Route: 050
     Dates: start: 20230215, end: 20230215

REACTIONS (7)
  - Infection [Fatal]
  - Platelet count decreased [Recovered/Resolved]
  - Clostridial infection [Recovered/Resolved]
  - Actinomycosis [Recovered/Resolved]
  - Staphylococcal infection [Recovered/Resolved]
  - Systemic candida [Recovered/Resolved]
  - Mucormycosis [Recovered/Resolved]

NARRATIVE: CASE EVENT DATE: 20230218
